FAERS Safety Report 6847618-4 (Version None)
Quarter: 2010Q3

REPORT INFORMATION
  Report Type: 
  Country: None (occurrence: None)
  Receive Date: 20100716
  Receipt Date: 20100702
  Transmission Date: 20110219
  Serious: Yes (Other)
  Sender: FDA-Public Use
  Company Number: PHHY2008JP00659

PATIENT
  Age: 69 Year
  Sex: Female

DRUGS (11)
  1. ZOMETA [Suspect]
     Indication: METASTASES TO BONE
     Dosage: 4 MG/DAY
     Route: 041
     Dates: start: 20070501
  2. FERRUM [Concomitant]
     Route: 048
  3. DEPAS [Concomitant]
     Route: 048
  4. GANATON [Concomitant]
  5. VOGLIBOSE [Concomitant]
     Route: 048
  6. PLATIBIT [Concomitant]
  7. DROTEBANOL [Concomitant]
  8. ATARAX [Concomitant]
  9. AMARYL [Concomitant]
     Route: 048
  10. PRAVASTATIN SODIUM [Concomitant]
     Route: 048
  11. CHEMOTHERAPEUTICS NOS [Concomitant]

REACTIONS (17)
  - ABSCESS DRAINAGE [None]
  - ABSCESS JAW [None]
  - ABSCESS MANAGEMENT [None]
  - BONE SWELLING [None]
  - DENTAL OPERATION [None]
  - IMPAIRED HEALING [None]
  - INCISIONAL DRAINAGE [None]
  - OSTEOMYELITIS [None]
  - OSTEONECROSIS OF JAW [None]
  - PAIN [None]
  - PRIMARY SEQUESTRUM [None]
  - SEQUESTRECTOMY [None]
  - SWELLING [None]
  - TOOTH ABSCESS [None]
  - TOOTH EXTRACTION [None]
  - TOOTH LOSS [None]
  - TRISMUS [None]
